FAERS Safety Report 8036986-6 (Version None)
Quarter: 2012Q1

REPORT INFORMATION
  Report Type: 
  Country: None (occurrence: None)
  Receive Date: 20120111
  Receipt Date: 20120109
  Transmission Date: 20120608
  Serious: No
  Sender: FDA-Public Use
  Company Number: US-PFIZER INC-2012007351

PATIENT
  Sex: Female
  Weight: 94.785 kg

DRUGS (5)
  1. CARVEDILOL [Concomitant]
     Indication: HYPERTENSION
     Dosage: 6.25 MG, DAILY
  2. SEROQUEL [Suspect]
     Indication: BIPOLAR DISORDER
     Dosage: 300 MG, DAILY
  3. LISINOPRIL [Concomitant]
     Indication: HYPERTENSION
     Dosage: 10 MG, DAILY
  4. NICOTROL [Suspect]
     Indication: SMOKING CESSATION THERAPY
     Dosage: UNK
     Dates: start: 20120109
  5. ISOSORBIDE [Concomitant]
     Indication: HYPERTENSION
     Dosage: 60 MG, DAILY

REACTIONS (2)
  - SOMNOLENCE [None]
  - INCORRECT DOSE ADMINISTERED [None]
